FAERS Safety Report 9271156 (Version 1)
Quarter: 2013Q2

REPORT INFORMATION
  Report Type: Report from Study
  Country: US (occurrence: US)
  Receive Date: 20130506
  Receipt Date: 20130506
  Transmission Date: 20140414
  Serious: Yes (Death)
  Sender: FDA-Public Use
  Company Number: PHEH2013US009762

PATIENT
  Age: 88 Year
  Sex: Female

DRUGS (7)
  1. GLEEVEC [Suspect]
     Indication: CHRONIC MYELOID LEUKAEMIA
     Dosage: 400 MG, QD
     Route: 048
     Dates: start: 20120302
  2. CALCIUM 600 + D [Concomitant]
  3. HYDROCHLOROTHIAZIDE [Concomitant]
  4. LIPITOR [Concomitant]
  5. MIRTAZAPINE [Concomitant]
  6. LEVOTHYROXINE SODIUM [Concomitant]
  7. TRAMADOL [Concomitant]

REACTIONS (1)
  - Death [Fatal]
